FAERS Safety Report 12423680 (Version 1)
Quarter: 2016Q2

REPORT INFORMATION
  Report Type: Spontaneous
  Country: US (occurrence: US)
  Receive Date: 20160601
  Receipt Date: 20160601
  Transmission Date: 20160815
  Serious: No
  Sender: FDA-Public Use
  Company Number: US-NOVEN PHARMACEUTICALS, INC.-US2015000790

PATIENT
  Age: 17 Year
  Sex: Female

DRUGS (4)
  1. MIDRIN [Concomitant]
     Active Substance: ACETAMINOPHEN\DICHLORALPHENAZONE\ISOMETHEPTENE
     Indication: HYPOTENSION
  2. LORYNA [Concomitant]
     Active Substance: DROSPIRENONE\ETHINYL ESTRADIOL
     Indication: CONTRACEPTION
  3. NACL [Concomitant]
     Active Substance: SODIUM CHLORIDE
     Dosage: 6 G, QD
  4. DAYTRANA [Suspect]
     Active Substance: METHYLPHENIDATE
     Indication: POSTURAL ORTHOSTATIC TACHYCARDIA SYNDROME
     Dosage: 10 MG, UNKNOWN
     Route: 062
     Dates: start: 20150728

REACTIONS (4)
  - Application site rash [Unknown]
  - Application site urticaria [Unknown]
  - Off label use [Not Recovered/Not Resolved]
  - Product adhesion issue [Unknown]

NARRATIVE: CASE EVENT DATE: 2015
